FAERS Safety Report 21547379 (Version 1)
Quarter: 2022Q4

REPORT INFORMATION
  Report Type: Spontaneous
  Country: US (occurrence: US)
  Receive Date: 20221103
  Receipt Date: 20221103
  Transmission Date: 20230113
  Serious: Yes (Death)
  Sender: FDA-Public Use
  Company Number: US-AMNEAL PHARMACEUTICALS-2022-AMRX-03163

PATIENT
  Age: 16 Year
  Sex: Female

DRUGS (1)
  1. DEFERASIROX [Suspect]
     Active Substance: DEFERASIROX
     Indication: Thalassaemia
     Route: 065

REACTIONS (4)
  - Brain death [Fatal]
  - Liver disorder [Fatal]
  - Hyperammonaemia [Fatal]
  - Brain oedema [Fatal]
